FAERS Safety Report 13757786 (Version 6)
Quarter: 2024Q2

REPORT INFORMATION
  Report Type: Report from Study
  Country: FR (occurrence: FR)
  Receive Date: 20170717
  Receipt Date: 20240514
  Transmission Date: 20240715
  Serious: Yes (Death, Hospitalization, Other)
  Sender: FDA-Public Use
  Company Number: FR-SUN PHARMACEUTICAL INDUSTRIES LTD-2017US-145400

PATIENT
  Age: 70 Year
  Sex: Male
  Weight: 77.5 kg

DRUGS (13)
  1. ODOMZO [Suspect]
     Active Substance: SONIDEGIB
     Indication: Myelodysplastic syndrome
     Dosage: 400 MG, DAILY (TOTAL-14000 MG)
     Route: 048
     Dates: start: 20170529, end: 20170702
  2. ODOMZO [Suspect]
     Active Substance: SONIDEGIB
     Dosage: 400 MILLIGRAM, DAILY (TOTAL-14000 MG)
     Route: 048
     Dates: start: 20170724, end: 20170729
  3. AZACITIDINE [Suspect]
     Active Substance: AZACITIDINE
     Indication: Myelodysplastic syndrome
     Dosage: 75 MILLIGRAM/SQ. METER, DAILY
     Route: 058
     Dates: start: 20170529, end: 20170602
  4. AZACITIDINE [Suspect]
     Active Substance: AZACITIDINE
     Dosage: 75 MILLIGRAM/SQ. METER, DAILY
     Route: 058
     Dates: start: 20170626
  5. LANTUS [Concomitant]
     Active Substance: INSULIN GLARGINE
     Indication: Dissociative identity disorder
     Dosage: 56 INTERNATIONAL UNIT, DAILY
     Route: 058
  6. RAMIPRIL [Concomitant]
     Active Substance: RAMIPRIL
     Indication: Hypertension
     Dosage: 10 MILLIGRAM, QD
     Route: 048
  7. EXJADE [Concomitant]
     Active Substance: DEFERASIROX
     Indication: Chelation therapy
     Dosage: 1500 MILLIGRAM, QD
     Route: 048
  8. MAGNE B6 [Concomitant]
     Active Substance: MAGNESIUM\PYRIDOXINE
     Indication: Product used for unknown indication
     Dosage: 1 DOSAGE FORM, QD
     Route: 048
  9. VALACYCLOVIR HYDROCHLORIDE [Concomitant]
     Active Substance: VALACYCLOVIR HYDROCHLORIDE
     Indication: Prophylaxis
     Dosage: 1000 MILLIGRAM, QD
     Route: 048
  10. NOVORAPID [Concomitant]
     Active Substance: INSULIN ASPART
     Indication: Dissociative identity disorder
     Dosage: UNK (30 INTERNATIONAL UNIT)
     Route: 058
  11. HYDROXYZINE [Concomitant]
     Active Substance: HYDROXYZINE HYDROCHLORIDE
     Indication: Anxiety
     Dosage: UNK (25 MG)
     Route: 048
  12. LACTULOSE [Concomitant]
     Active Substance: LACTULOSE
     Indication: Constipation
     Dosage: UNK (1 DF, 1 POUCH)
     Route: 048
  13. AMOXICILLIN [Concomitant]
     Active Substance: AMOXICILLIN
     Indication: Prostatitis
     Dosage: UNK (6 MG)
     Route: 048
     Dates: start: 20170712, end: 20170802

REACTIONS (1)
  - Sepsis [Fatal]

NARRATIVE: CASE EVENT DATE: 20170702
